FAERS Safety Report 9174493 (Version 1)
Quarter: 2013Q1

REPORT INFORMATION
  Report Type: Spontaneous
  Country: US (occurrence: US)
  Receive Date: 20130320
  Receipt Date: 20130320
  Transmission Date: 20140127
  Serious: Yes (Life-Threatening, Hospitalization, Other)
  Sender: FDA-Public Use
  Company Number: US-MYLANLABS-2012S1015166

PATIENT
  Age: 62 Year
  Sex: Female
  Weight: 56.7 kg

DRUGS (3)
  1. ESTRADIOL TRANSDERMAL SYSTEM, USP [Suspect]
     Indication: HORMONE REPLACEMENT THERAPY
     Dosage: QW
     Route: 062
     Dates: start: 2009, end: 201206
  2. ESTRADIOL TRANSDERMAL SYSTEM, USP [Suspect]
     Indication: HOT FLUSH
     Dosage: QW
     Route: 062
     Dates: start: 2009, end: 201206
  3. TYLENOL PM [Concomitant]

REACTIONS (1)
  - Cerebrovascular accident [Recovered/Resolved]
